FAERS Safety Report 7349177-9 (Version None)
Quarter: 2011Q1

REPORT INFORMATION
  Report Type: 
  Country: None (occurrence: None)
  Receive Date: 20110314
  Receipt Date: 20100423
  Transmission Date: 20110831
  Serious: No
  Sender: FDA-Public Use
  Company Number: A0856501A

PATIENT
  Age: 5 Year
  Sex: Male
  Weight: 20.9 kg

DRUGS (2)
  1. NO CONCURRENT MEDICATION [Concomitant]
  2. AMOXIL [Suspect]
     Dosage: 400MG TWICE PER DAY
     Route: 048

REACTIONS (4)
  - OVERDOSE [None]
  - DRUG DISPENSING ERROR [None]
  - DIARRHOEA [None]
  - ORAL CANDIDIASIS [None]
